FAERS Safety Report 5789879-9 (Version None)
Quarter: 2008Q2

REPORT INFORMATION
  Report Type: 
  Country: None (occurrence: None)
  Receive Date: 20080626
  Receipt Date: 20080618
  Transmission Date: 20081010
  Serious: Yes (Hospitalization)
  Sender: FDA-Public Use
  Company Number: IT-ASTRAZENECA-2008SE03112

PATIENT
  Age: 21148 Day
  Sex: Male

DRUGS (3)
  1. NEXIUM [Suspect]
     Indication: DYSPEPSIA
     Route: 048
     Dates: start: 20080601, end: 20080601
  2. ROSUVASTATIN CALCIUM [Concomitant]
     Route: 048
     Dates: start: 20050101
  3. LOBIVON [Concomitant]
     Route: 048
     Dates: start: 20080101

REACTIONS (6)
  - ABDOMINAL PAIN UPPER [None]
  - CYANOSIS [None]
  - HYPERTENSION [None]
  - PRURITUS [None]
  - SOPOR [None]
  - TREMOR [None]
